FAERS Safety Report 11929244 (Version 3)
Quarter: 2016Q1

REPORT INFORMATION
  Report Type: Spontaneous
  Country: PL (occurrence: PL)
  Receive Date: 20160120
  Receipt Date: 20160217
  Transmission Date: 20160526
  Serious: Yes (Hospitalization, Other)
  Sender: FDA-Public Use
  Company Number: PL-ROCHE-1695087

PATIENT
  Sex: Male
  Weight: 61.7 kg

DRUGS (9)
  1. ACENOCOUMAROL [Concomitant]
     Active Substance: ACENOCOUMAROL
     Indication: ATRIAL FIBRILLATION
     Route: 048
     Dates: start: 201408
  2. ADVAGRAF [Suspect]
     Active Substance: TACROLIMUS
     Indication: IMMUNOSUPPRESSION
     Route: 065
  3. ENCORTON [Suspect]
     Active Substance: PREDNISONE
     Route: 048
     Dates: start: 201306
  4. CELLCEPT [Suspect]
     Active Substance: MYCOPHENOLATE MOFETIL\MYCOPHENOLATE MOFETIL HYDROCHLORIDE
     Indication: IMMUNOSUPPRESSION
     Route: 065
     Dates: start: 201306
  5. ADVAGRAF [Suspect]
     Active Substance: TACROLIMUS
     Route: 065
  6. ENCORTON [Suspect]
     Active Substance: PREDNISONE
     Indication: IMMUNOSUPPRESSION
     Route: 065
  7. PROGRAF [Concomitant]
     Active Substance: TACROLIMUS\TACROLIMUS ANHYDROUS
     Route: 048
     Dates: start: 201306
  8. BIBLOC [Concomitant]
     Indication: MYOCARDIAL ISCHAEMIA
     Route: 048
     Dates: start: 201408
  9. CALPEROS [Concomitant]
     Active Substance: CALCIUM CARBONATE
     Indication: OSTEOPOROSIS PROPHYLAXIS
     Route: 048
     Dates: start: 201306

REACTIONS (31)
  - Renal transplant failure [Unknown]
  - Transplant dysfunction [Recovered/Resolved]
  - Diarrhoea [Unknown]
  - Oliguria [Unknown]
  - Hypoproteinaemia [Unknown]
  - Diabetes mellitus management [Unknown]
  - Hypertension [Unknown]
  - Mitral valve incompetence [Unknown]
  - Tricuspid valve incompetence [Unknown]
  - Intervertebral disc disorder [Unknown]
  - Upper respiratory tract infection [Unknown]
  - Abdominal pain [Unknown]
  - Dehydration [Unknown]
  - Atrial fibrillation [Unknown]
  - Rales [Recovered/Resolved]
  - Blood creatinine increased [Recovering/Resolving]
  - Obstruction [Unknown]
  - Retching [Unknown]
  - Decreased appetite [Unknown]
  - Metabolic acidosis [Recovered/Resolved]
  - General physical health deterioration [Recovering/Resolving]
  - Intervertebral disc degeneration [Unknown]
  - C-reactive protein increased [Unknown]
  - Hyperkalaemia [Unknown]
  - Productive cough [Unknown]
  - Asthenia [Unknown]
  - Cytomegalovirus infection [Unknown]
  - Aortic valve incompetence [Unknown]
  - Leukopenia [Recovered/Resolved]
  - Body temperature increased [Recovered/Resolved]
  - Myocardial ischaemia [Unknown]
